FAERS Safety Report 24555173 (Version 1)
Quarter: 2024Q4

REPORT INFORMATION
  Report Type: Spontaneous
  Country: FR (occurrence: FR)
  Receive Date: 20241028
  Receipt Date: 20241028
  Transmission Date: 20250114
  Serious: Yes (Hospitalization)
  Sender: RANBAXY
  Company Number: FR-SUN PHARMACEUTICAL INDUSTRIES LTD-2024RR-475393

PATIENT
  Age: 36 Year
  Sex: Female

DRUGS (3)
  1. GANIRELIX ACETATE [Suspect]
     Active Substance: GANIRELIX ACETATE
     Indication: Oocyte harvest
     Dosage: 1 DOSAGE FORM, DAILY
     Route: 058
     Dates: start: 202310
  2. FOLLITROPIN ALFA [Suspect]
     Active Substance: FOLLITROPIN ALFA
     Indication: Oocyte harvest
     Dosage: 112.5 INTERNATIONAL UNIT, DAILY
     Route: 058
     Dates: start: 202310
  3. CHORIOGONADOTROPIN ALFA [Suspect]
     Active Substance: CHORIOGONADOTROPIN ALFA
     Indication: Oocyte harvest
     Dosage: 1 DOSAGE FORM, IN TOTAL
     Route: 058
     Dates: start: 20231016

REACTIONS (3)
  - Ovarian hyperstimulation syndrome [Recovering/Resolving]
  - Pleural effusion [Recovering/Resolving]
  - Pelvic fluid collection [Recovering/Resolving]

NARRATIVE: CASE EVENT DATE: 20231018
